FAERS Safety Report 7048025-4 (Version None)
Quarter: 2010Q4

REPORT INFORMATION
  Report Type: 
  Country: None (occurrence: None)
  Receive Date: 20101015
  Receipt Date: 20101008
  Transmission Date: 20110411
  Serious: Yes (Death, Hospitalization)
  Sender: FDA-Public Use
  Company Number: A0886754A

PATIENT
  Sex: Male

DRUGS (1)
  1. AVANDIA [Suspect]
     Route: 048
     Dates: start: 20000201, end: 20071101

REACTIONS (8)
  - ARTERIOSCLEROSIS CORONARY ARTERY [None]
  - BRAIN DEATH [None]
  - CARDIAC ARREST [None]
  - DEATH [None]
  - HYPERLIPIDAEMIA [None]
  - HYPOXIC-ISCHAEMIC ENCEPHALOPATHY [None]
  - MYOCARDIAL INFARCTION [None]
  - RESUSCITATION [None]
